FAERS Safety Report 9539032 (Version 1)
Quarter: 2013Q3

REPORT INFORMATION
  Report Type: Report from Study
  Country: NO (occurrence: NO)
  Receive Date: 20130920
  Receipt Date: 20130920
  Transmission Date: 20140515
  Serious: Yes (Other)
  Sender: FDA-Public Use
  Company Number: NO-JNJFOC-20130908982

PATIENT
  Sex: Female

DRUGS (1)
  1. TOPIRAMATE [Suspect]
     Indication: EPILEPSY
     Route: 048

REACTIONS (4)
  - Grand mal convulsion [Unknown]
  - Complex partial seizures [Unknown]
  - Exposure during pregnancy [Recovered/Resolved]
  - Drug level decreased [Unknown]
